FAERS Safety Report 7479294-4 (Version None)
Quarter: 2011Q2

REPORT INFORMATION
  Report Type: 
  Country: None (occurrence: None)
  Receive Date: 20110513
  Receipt Date: 20110511
  Transmission Date: 20111010
  Serious: Yes (Other)
  Sender: FDA-Public Use
  Company Number: US-PFIZER INC-2011101243

PATIENT
  Sex: Male

DRUGS (5)
  1. BENADRYL [Suspect]
     Indication: PRURITUS
  2. HYDROCORTISONE [Suspect]
     Indication: BURNING SENSATION
     Dosage: UNK
     Dates: start: 20110501
  3. BENADRYL [Suspect]
     Indication: BURNING SENSATION
     Dosage: UNK
     Dates: start: 20110501
  4. CHANTIX [Suspect]
     Dosage: UNK
     Route: 048
     Dates: start: 20110101
  5. HYDROCORTISONE [Suspect]
     Indication: PRURITUS

REACTIONS (3)
  - HYPERSENSITIVITY [None]
  - PRURITUS [None]
  - BURNING SENSATION [None]
